FAERS Safety Report 23291648 (Version 1)
Quarter: 2023Q4

REPORT INFORMATION
  Report Type: Spontaneous
  Country: US (occurrence: US)
  Receive Date: 20231213
  Receipt Date: 20231213
  Transmission Date: 20240109
  Serious: No
  Sender: FDA-Public Use
  Company Number: US-ALVOGEN-2023089426

PATIENT
  Age: 62 Year
  Sex: Female

DRUGS (3)
  1. FENTANYL [Suspect]
     Active Substance: FENTANYL\FENTANYL CITRATE
     Indication: Back pain
     Dosage: WAS PRESCRIBED 100 MCG/HOUR EVERY 3 DAYS.
  2. FENTANYL [Suspect]
     Active Substance: FENTANYL\FENTANYL CITRATE
     Indication: Back pain
     Dosage: SELF-REDUCED TO 50MCG/HOUR.
  3. FENTANYL [Suspect]
     Active Substance: FENTANYL\FENTANYL CITRATE
     Indication: Back pain
     Dosage: FURTHER REDUCED TO 25MCG/HOUR?EXPIRATION DATE: UU-MAY-2025.

REACTIONS (6)
  - Impaired work ability [Unknown]
  - Impaired driving ability [Unknown]
  - Device malfunction [Unknown]
  - Device adhesion issue [Unknown]
  - Product odour abnormal [Unknown]
  - Product availability issue [Unknown]

NARRATIVE: CASE EVENT DATE: 20230201
